FAERS Safety Report 7215771-9 (Version None)
Quarter: 2011Q1

REPORT INFORMATION
  Report Type: 
  Country: None (occurrence: None)
  Receive Date: 20110107
  Receipt Date: 20101231
  Transmission Date: 20110831
  Serious: Yes (Death)
  Sender: FDA-Public Use
  Company Number: US-PFIZER INC-2011000511

PATIENT
  Age: 45 Year
  Sex: Male

DRUGS (3)
  1. IBUPROFEN [Suspect]
     Dosage: UNK
     Route: 065
  2. ACETAMINOPHEN [Suspect]
     Dosage: UNK
     Route: 067
  3. ETHANOL [Suspect]
     Dosage: UNK
     Route: 065

REACTIONS (1)
  - DEATH [None]
